FAERS Safety Report 24156771 (Version 1)
Quarter: 2024Q3

REPORT INFORMATION
  Report Type: Spontaneous
  Country: CN (occurrence: CN)
  Receive Date: 20240731
  Receipt Date: 20240731
  Transmission Date: 20241017
  Serious: Yes (Life-Threatening, Hospitalization)
  Sender: BAYER
  Company Number: CN-BAYER-2024A110452

PATIENT
  Age: 66 Year
  Sex: Female
  Weight: 73.3 kg

DRUGS (2)
  1. GADOBUTROL [Suspect]
     Active Substance: GADOBUTROL
     Indication: Magnetic resonance imaging pelvic
     Dosage: 7.5 ML, ONCE
     Route: 042
     Dates: start: 20240729, end: 20240729
  2. GADOBUTROL [Suspect]
     Active Substance: GADOBUTROL
     Indication: Pelvic mass

REACTIONS (2)
  - Anaphylactic shock [Unknown]
  - Cardio-respiratory arrest [None]

NARRATIVE: CASE EVENT DATE: 20240729
